FAERS Safety Report 4885152-1 (Version None)
Quarter: 2005Q4

REPORT INFORMATION
  Report Type: 
  Country: None (occurrence: None)
  Receive Date: 20051201
  Receipt Date: 20050913
  Transmission Date: 20060501
  Serious: No
  Sender: FDA-Public Use
  Company Number: 2005PV002158

PATIENT
  Age: 67 Year
  Sex: Male
  Weight: 117.9352 kg

DRUGS (3)
  1. BYETTA [Suspect]
     Indication: DIABETES MELLITUS NON-INSULIN-DEPENDENT
     Dosage: 5 MCG; BID; SC
     Route: 058
     Dates: start: 20050913
  2. GLUCOPHAGE [Concomitant]
  3. GLIPIZIDE [Concomitant]

REACTIONS (4)
  - ANXIETY [None]
  - BLOOD GLUCOSE DECREASED [None]
  - HYPERHIDROSIS [None]
  - NERVOUSNESS [None]
